FAERS Safety Report 4964921-3 (Version None)
Quarter: 2006Q2

REPORT INFORMATION
  Report Type: 
  Country: None (occurrence: None)
  Receive Date: 20060403
  Receipt Date: 20060323
  Transmission Date: 20061013
  Serious: Yes (Life-Threatening)
  Sender: FDA-Public Use
  Company Number: 06H-087-0306851-00

PATIENT
  Age: 92 Year
  Sex: Male

DRUGS (2)
  1. VANCOMYCIN HYDROCHLORIDE INJECTION (VANCOMYCIN HYDROCHLORIDE) (VANCOMY [Suspect]
     Indication: SEPSIS
  2. TEICOPLANIN (TEICOPLANIN) [Suspect]
     Indication: SEPSIS

REACTIONS (7)
  - CARDIAC FAILURE CONGESTIVE [None]
  - DYSPNOEA [None]
  - ELECTROCARDIOGRAM ABNORMAL [None]
  - EOSINOPHILIA [None]
  - HEPATIC FUNCTION ABNORMAL [None]
  - RASH [None]
  - VENTRICULAR HYPOKINESIA [None]
